FAERS Safety Report 4804518-9 (Version None)
Quarter: 2005Q4

REPORT INFORMATION
  Report Type: 
  Country: None (occurrence: None)
  Receive Date: 20051017
  Receipt Date: 20051005
  Transmission Date: 20060501
  Serious: Yes (Hospitalization)
  Sender: FDA-Public Use
  Company Number: 02100-JPN-05-0387

PATIENT
  Age: 73 Year
  Sex: Male

DRUGS (8)
  1. CILOSTAZOL [Suspect]
     Indication: ARTERIOSCLEROSIS OBLITERANS
     Dosage: 150 MG, ORAL
     Route: 048
     Dates: start: 20050715, end: 20050717
  2. BERAPROST SODIUM [Suspect]
     Indication: ARTERIOSCLEROSIS OBLITERANS
     Dosage: 120 MCG ORAL
     Route: 048
     Dates: start: 20050715, end: 20050717
  3. BENIDIPINE HYDROCHLORIDE [Concomitant]
  4. TEMOCAPRIL HYDROCHLORIDE [Concomitant]
  5. ALPROSTADIL [Concomitant]
  6. ARGATROBAN [Concomitant]
  7. LOW CALORIE DIET (1600 KCALS) [Concomitant]
  8. MEDICAL DIET(NACL 7 G) [Concomitant]

REACTIONS (1)
  - RENAL FAILURE CHRONIC [None]
